FAERS Safety Report 5515404-3 (Version None)
Quarter: 2007Q4

REPORT INFORMATION
  Report Type: 
  Country: None (occurrence: None)
  Receive Date: 20071113
  Receipt Date: 20070208
  Transmission Date: 20080405
  Serious: No
  Sender: FDA-Public Use
  Company Number: A0638904A

PATIENT
  Age: 79 Year
  Sex: Female

DRUGS (5)
  1. COREG [Suspect]
     Indication: HYPERTENSION
     Dosage: 6.25MG TWICE PER DAY
     Route: 048
     Dates: end: 20070115
  2. COREG [Suspect]
     Dosage: 12.5MG TWICE PER DAY
     Route: 048
     Dates: start: 20070115
  3. SYNTHROID [Concomitant]
  4. NORVASC [Concomitant]
  5. LIPITOR [Concomitant]

REACTIONS (1)
  - DRUG INEFFECTIVE [None]
